FAERS Safety Report 23638784 (Version 3)
Quarter: 2024Q2

REPORT INFORMATION
  Report Type: Spontaneous
  Country: US (occurrence: None)
  Receive Date: 20240315
  Receipt Date: 20240521
  Transmission Date: 20240716
  Serious: Yes (Death, Other)
  Sender: FDA-Public Use
  Company Number: 2024A061631

PATIENT
  Age: 74 Year
  Sex: Female

DRUGS (8)
  1. TRUQAP [Suspect]
     Active Substance: CAPIVASERTIB
     Indication: Breast cancer female
     Route: 048
     Dates: start: 20240222
  2. LOSARTAN [Concomitant]
     Active Substance: LOSARTAN
  3. OMEPRAZOLE [Concomitant]
     Active Substance: DONEPEZIL HYDROCHLORIDE\OMEPRAZOLE\OMEPRAZOLE MAGNESIUM
  4. MEGACE [Concomitant]
     Active Substance: MEGESTROL ACETATE
  5. ALBUTEROL [Concomitant]
     Active Substance: ALBUTEROL
     Indication: Hypoxia
  6. FASLODEX [Concomitant]
     Active Substance: FULVESTRANT
     Dates: start: 20240122
  7. FASLODEX [Concomitant]
     Active Substance: FULVESTRANT
     Dates: start: 20240208
  8. FASLODEX [Concomitant]
     Active Substance: FULVESTRANT
     Dates: start: 20240222

REACTIONS (6)
  - Renal failure [Fatal]
  - Metabolic acidosis [Fatal]
  - Respiratory failure [Fatal]
  - Acute kidney injury [Fatal]
  - Chronic respiratory disease [Fatal]
  - Hyperglycaemia [Unknown]
